FAERS Safety Report 6375866-9 (Version None)
Quarter: 2009Q3

REPORT INFORMATION
  Report Type: 
  Country: None (occurrence: None)
  Receive Date: 20090924
  Receipt Date: 20090915
  Transmission Date: 20100115
  Serious: Yes (Death, Other)
  Sender: FDA-Public Use
  Company Number: GB-JNJFOC-20090803535

PATIENT
  Age: 76 Year
  Sex: Female
  Weight: 69 kg

DRUGS (8)
  1. REMICADE [Suspect]
     Indication: RHEUMATOID ARTHRITIS
     Route: 042
  2. PREDNISOLONE [Concomitant]
  3. BENDROFLUAZIDE [Concomitant]
  4. CALCIUM GLUCONATE [Concomitant]
  5. CLOTRIMAZOLE [Concomitant]
  6. CO-CODAMOL [Concomitant]
  7. FOSAMAX [Concomitant]
  8. ROFECOXIB [Concomitant]

REACTIONS (2)
  - COLON CANCER [None]
  - DEATH [None]
